FAERS Safety Report 8070844-6 (Version None)
Quarter: 2012Q1

REPORT INFORMATION
  Report Type: 
  Country: None (occurrence: None)
  Receive Date: 20120125
  Receipt Date: 20120120
  Transmission Date: 20120608
  Serious: Yes (Other)
  Sender: FDA-Public Use
  Company Number: ES-GLAXOSMITHKLINE-B0773741A

PATIENT
  Age: 71 Year
  Sex: Male
  Weight: 87 kg

DRUGS (2)
  1. OMACOR [Suspect]
     Indication: DYSLIPIDAEMIA
     Dosage: 1000MG PER DAY
     Route: 048
     Dates: start: 20110830, end: 20110926
  2. CRESTOR [Concomitant]

REACTIONS (2)
  - HYPERGLYCAEMIA [None]
  - OFF LABEL USE [None]
